FAERS Safety Report 16883505 (Version 1)
Quarter: 2019Q4

REPORT INFORMATION
  Report Type: Spontaneous
  Country: IT (occurrence: IT)
  Receive Date: 20191004
  Receipt Date: 20191004
  Transmission Date: 20200122
  Serious: Yes (Life-Threatening)
  Sender: FDA-Public Use
  Company Number: IT-TEVA-2019-IT-1115852

PATIENT
  Sex: Male

DRUGS (2)
  1. BENTELAN 1 MG COMPRESSE EFFERVESCENTI [Concomitant]
  2. CLARITHROMYCIN. [Suspect]
     Active Substance: CLARITHROMYCIN
     Indication: DERMATOSIS
     Dosage: 500 MG 1 DAYS
     Route: 048
     Dates: start: 20190902, end: 20190907

REACTIONS (1)
  - Hepatitis fulminant [Unknown]

NARRATIVE: CASE EVENT DATE: 20190908
